FAERS Safety Report 5806205-7 (Version None)
Quarter: 2008Q3

REPORT INFORMATION
  Report Type: 
  Country: None (occurrence: None)
  Receive Date: 20080710
  Receipt Date: 20080701
  Transmission Date: 20090109
  Serious: Yes (Hospitalization, Other)
  Sender: FDA-Public Use
  Company Number: US-ROCHE-443569

PATIENT
  Sex: Male
  Weight: 73.5 kg

DRUGS (3)
  1. ACCUTANE [Suspect]
     Route: 048
     Dates: start: 20000509, end: 20000611
  2. ACCUTANE [Suspect]
     Route: 048
     Dates: start: 20000612, end: 20001121
  3. PAXIL [Concomitant]
     Indication: DEPRESSION
     Route: 048
     Dates: end: 20070719

REACTIONS (18)
  - ARTHRALGIA [None]
  - CHEILITIS [None]
  - CHOLECYSTITIS CHRONIC [None]
  - CROHN'S DISEASE [None]
  - DIZZINESS [None]
  - FATIGUE [None]
  - GASTROOESOPHAGITIS [None]
  - GENERALISED ANXIETY DISORDER [None]
  - HAEMORRHOIDS [None]
  - HAND FRACTURE [None]
  - HEADACHE [None]
  - ILL-DEFINED DISORDER [None]
  - INFLAMMATORY BOWEL DISEASE [None]
  - MAJOR DEPRESSION [None]
  - PALPITATIONS [None]
  - PANIC ATTACK [None]
  - SUICIDAL IDEATION [None]
  - SUICIDE ATTEMPT [None]
